FAERS Safety Report 21675719 (Version 1)
Quarter: 2022Q4

REPORT INFORMATION
  Report Type: Report from Study
  Country: CA (occurrence: CA)
  Receive Date: 20221202
  Receipt Date: 20221202
  Transmission Date: 20230112
  Serious: Yes (Other)
  Sender: FDA-Public Use
  Company Number: CA-HLS-202201809

PATIENT
  Sex: Male

DRUGS (2)
  1. CLOZARIL [Suspect]
     Active Substance: CLOZAPINE
     Indication: Product used for unknown indication
     Route: 048
     Dates: start: 20141007, end: 20221001
  2. CLOZARIL [Suspect]
     Active Substance: CLOZAPINE
     Indication: Product used for unknown indication
     Route: 048
     Dates: start: 20221007

REACTIONS (5)
  - C-reactive protein increased [Recovering/Resolving]
  - Dementia [Unknown]
  - Psychotic disorder [Unknown]
  - Rhabdomyolysis [Unknown]
  - Troponin increased [Not Recovered/Not Resolved]
